FAERS Safety Report 4740095-9 (Version None)
Quarter: 2005Q3

REPORT INFORMATION
  Report Type: 
  Country: None (occurrence: None)
  Receive Date: 20050809
  Receipt Date: 20050809
  Transmission Date: 20060218
  Serious: Yes (Hospitalization)
  Sender: FDA-Public Use
  Company Number: None

PATIENT
  Sex: Female
  Weight: 51 kg

DRUGS (1)
  1. CHLOROQUINE 500 MG WEST WARD [Suspect]
     Indication: MALARIA PROPHYLAXIS
     Dosage: 500 MG ONCE WEEKLY ORAL
     Route: 048
     Dates: start: 20050622, end: 20050720

REACTIONS (8)
  - ABNORMAL BEHAVIOUR [None]
  - HALLUCINATION, VISUAL [None]
  - INCOHERENT [None]
  - INSOMNIA [None]
  - PARANOIA [None]
  - PSYCHOMOTOR HYPERACTIVITY [None]
  - PSYCHOTIC DISORDER [None]
  - URINARY INCONTINENCE [None]
